FAERS Safety Report 17031800 (Version 3)
Quarter: 2019Q4

REPORT INFORMATION
  Report Type: Report from Study
  Country: US (occurrence: US)
  Receive Date: 20191114
  Receipt Date: 20191226
  Transmission Date: 20200122
  Serious: Yes (Hospitalization)
  Sender: FDA-Public Use
  Company Number: US-ACTELION-A-US2019-198054

PATIENT
  Age: 63 Year
  Sex: Female

DRUGS (28)
  1. CLONAZEPAM. [Concomitant]
     Active Substance: CLONAZEPAM
     Dosage: 0.5 MG, PRN NIGHTLY
  2. CETIRIZINE [Concomitant]
     Active Substance: CETIRIZINE HYDROCHLORIDE
     Dosage: 5 MG, QD, PRN
  3. CARVEDILOL. [Concomitant]
     Active Substance: CARVEDILOL
     Dosage: 3.125 MG, BID
  4. BENZONATATE. [Concomitant]
     Active Substance: BENZONATATE
     Dosage: 100 MG TID PRN
  5. BACTROBAN [Concomitant]
     Active Substance: MUPIROCIN\MUPIROCIN CALCIUM
  6. SULFAMETHOXAZOLE AND TRIMETHOPRIM [Concomitant]
     Active Substance: SULFAMETHOXAZOLE\TRIMETHOPRIM
     Dosage: 400-80 MG, QD
  7. SPIRONOLACTONE. [Concomitant]
     Active Substance: SPIRONOLACTONE
     Dosage: 25 MG, QD
  8. OPSUMIT [Suspect]
     Active Substance: MACITENTAN
     Indication: PULMONARY ARTERIAL HYPERTENSION
     Dosage: 10 MG, QD
     Route: 048
     Dates: start: 20190919
  9. MYCOPHENOLATE [Concomitant]
     Active Substance: MYCOPHENOLIC ACID
     Indication: INTERSTITIAL LUNG DISEASE
     Dosage: UNK
  10. BACITRACIN. [Concomitant]
     Active Substance: BACITRACIN
  11. LIPITOR [Concomitant]
     Active Substance: ATORVASTATIN CALCIUM
     Dosage: 40 MG, QD
  12. GUAIFENESIN AND CODEINE PHOSPHATE [Concomitant]
     Active Substance: CODEINE PHOSPHATE\GUAIFENESIN
     Dosage: 100-10 MG/5ML QID, PRN
  13. PREDNISONE. [Concomitant]
     Active Substance: PREDNISONE
     Dosage: 20 MG
  14. OXYGEN. [Concomitant]
     Active Substance: OXYGEN
     Dosage: 8 LPM VIA NC CONTINUOUS
  15. POTASSIUM CHLORIDE. [Concomitant]
     Active Substance: POTASSIUM CHLORIDE
     Dosage: 20 MEQ, BID
  16. MORPHINE SULFATE. [Concomitant]
     Active Substance: MORPHINE SULFATE
     Dosage: 100 MG/ 5ML
  17. REMODULIN [Suspect]
     Active Substance: TREPROSTINIL
     Indication: PRODUCT USED FOR UNKNOWN INDICATION
     Dosage: 4.5 NG/KG, PER MIN
     Route: 042
  18. LASIX [Concomitant]
     Active Substance: FUROSEMIDE
     Dosage: 40 MG QD
  19. MYCOPHENOLATE [Concomitant]
     Active Substance: MYCOPHENOLIC ACID
     Dosage: 100 MG, BID
  20. OXYGEN. [Concomitant]
     Active Substance: OXYGEN
     Dosage: 6 L/MIN
  21. METFORMIN [Concomitant]
     Active Substance: METFORMIN HYDROCHLORIDE
     Dosage: 500 MG, BID
  22. FLONASE [Concomitant]
     Active Substance: FLUTICASONE PROPIONATE
     Dosage: 27.5 MCG/SPRAY
  23. ALBUTEROL SULFATE. [Concomitant]
     Active Substance: ALBUTEROL SULFATE
     Dosage: 1.23 MG/3ML , TID PRN
  24. PREDNISONE. [Concomitant]
     Active Substance: PREDNISONE
     Dosage: 40 MG
  25. MUPIROCIN. [Concomitant]
     Active Substance: MUPIROCIN
  26. LOPERAMIDE [Concomitant]
     Active Substance: LOPERAMIDE
     Dosage: 2 MG, QID PRN
  27. ACYCLOVIR. [Concomitant]
     Active Substance: ACYCLOVIR
     Dosage: 400 MG, QD
  28. LASIX [Concomitant]
     Active Substance: FUROSEMIDE
     Dosage: 20 MG, QD

REACTIONS (29)
  - Right ventricular failure [Unknown]
  - Type 2 diabetes mellitus [Unknown]
  - Pulmonary hypertension [Not Recovered/Not Resolved]
  - Dyspnoea [Unknown]
  - Fluid retention [Unknown]
  - Cardiac index decreased [Unknown]
  - Dependence on oxygen therapy [Unknown]
  - Diarrhoea [Unknown]
  - Unevaluable event [Unknown]
  - Fatigue [Unknown]
  - Anal incontinence [Unknown]
  - Gait disturbance [Unknown]
  - Leukopenia [Unknown]
  - Asthenia [Unknown]
  - Blood glucose increased [Unknown]
  - Blood creatinine increased [Unknown]
  - Interstitial lung disease [Unknown]
  - Muscular weakness [Unknown]
  - Urinary incontinence [Unknown]
  - Diastolic dysfunction [Unknown]
  - Dyspnoea exertional [Unknown]
  - Azotaemia [Unknown]
  - Ingrowing nail [Unknown]
  - Walking aid user [Unknown]
  - Memory impairment [Unknown]
  - Catheterisation cardiac [Unknown]
  - Syncope [Unknown]
  - Hypoxia [Unknown]
  - Anxiety [Unknown]

NARRATIVE: CASE EVENT DATE: 20191024
